FAERS Safety Report 13550578 (Version 1)
Quarter: 2017Q2

REPORT INFORMATION
  Report Type: Spontaneous
  Country: US (occurrence: US)
  Receive Date: 20170516
  Receipt Date: 20170516
  Transmission Date: 20170830
  Serious: Yes (Hospitalization)
  Sender: FDA-Public Use
  Company Number: None

PATIENT
  Age: 85 Year
  Sex: Female
  Weight: 64.8 kg

DRUGS (5)
  1. WARFARIN [Suspect]
     Active Substance: WARFARIN
     Indication: ATRIAL FIBRILLATION
     Route: 048
  2. COREG [Concomitant]
     Active Substance: CARVEDILOL
  3. MVI [Concomitant]
     Active Substance: VITAMINS
  4. BUMEX [Concomitant]
     Active Substance: BUMETANIDE
  5. LISINOPRIL. [Concomitant]
     Active Substance: LISINOPRIL

REACTIONS (2)
  - Rectal haemorrhage [None]
  - Diverticulum intestinal haemorrhagic [None]

NARRATIVE: CASE EVENT DATE: 20170211
